FAERS Safety Report 7793233-8 (Version None)
Quarter: 2011Q3

REPORT INFORMATION
  Report Type: 
  Country: None (occurrence: None)
  Receive Date: 20110930
  Receipt Date: 20110930
  Transmission Date: 20111222
  Serious: Yes (Life-Threatening)
  Sender: FDA-Public Use
  Company Number: None

PATIENT
  Sex: Female
  Weight: 78.9259 kg

DRUGS (1)
  1. TERCONAZOLE [Suspect]
     Indication: FUNGAL INFECTION
     Dosage: SUPPOSITORY VAGINAL 1 APPLICATOR AT BEDTIME
     Route: 067
     Dates: start: 20110801

REACTIONS (3)
  - RASH ERYTHEMATOUS [None]
  - COUGH [None]
  - LOCAL SWELLING [None]
